APPROVED DRUG PRODUCT: MELOXICAM
Active Ingredient: MELOXICAM
Strength: 5MG
Dosage Form/Route: CAPSULE;ORAL
Application: A209487 | Product #001 | TE Code: AB
Applicant: LUPIN LTD
Approved: Jun 1, 2020 | RLD: No | RS: No | Type: RX